FAERS Safety Report 5332938-5 (Version None)
Quarter: 2007Q2

REPORT INFORMATION
  Report Type: 
  Country: None (occurrence: None)
  Receive Date: 20070306
  Receipt Date: 20060830
  Transmission Date: 20071010
  Serious: Yes (Other)
  Sender: FDA-Public Use
  Company Number: A03200605472

PATIENT
  Age: 53 Year
  Sex: Female
  Weight: 54.42 kg

DRUGS (5)
  1. PLAVIX [Suspect]
     Indication: TRANSIENT ISCHAEMIC ATTACK
     Dosage: 75 MG QD - ORAL
     Route: 048
     Dates: start: 20060501, end: 20060901
  2. COUMADIN [Suspect]
     Dosage: 3 MG QD - ORAL
     Route: 048
     Dates: start: 20050208, end: 20060501
  3. COUMADIN [Suspect]
     Dosage: 3 MG QD - ORAL
     Route: 048
     Dates: start: 20060901, end: 20060901
  4. DIGOXIN [Concomitant]
  5. HYDROCODONE BITARTRATE [Concomitant]

REACTIONS (5)
  - ANAEMIA [None]
  - ARTHRALGIA [None]
  - EAR PAIN [None]
  - MELAENA [None]
  - PAIN IN EXTREMITY [None]
